FAERS Safety Report 5960004-4 (Version None)
Quarter: 2008Q4

REPORT INFORMATION
  Report Type: 
  Country: None (occurrence: None)
  Receive Date: 20081119
  Receipt Date: 20081119
  Transmission Date: 20090506
  Serious: Yes (Life-Threatening, Hospitalization, Disabling, Other)
  Sender: FDA-Public Use
  Company Number: None

PATIENT
  Age: 60 Year
  Sex: Male
  Weight: 77.5 kg

DRUGS (16)
  1. MELPHALAN [Suspect]
     Indication: MULTIPLE MYELOMA
     Dosage: 29MG/1000 ML IV
     Route: 042
  2. ALBUTEROL [Concomitant]
  3. ALLOPURINOL [Concomitant]
  4. ASCORBIC ACID [Concomitant]
  5. ATROVENT [Concomitant]
  6. ATOVAQUONE [Concomitant]
  7. BISACODYL [Concomitant]
  8. DIPHENHYDRAMINE HCL [Concomitant]
  9. FENTANYL [Concomitant]
  10. GABAPENTIN [Concomitant]
  11. REGULAR INSULIN [Concomitant]
  12. HUMATROPINE [Concomitant]
  13. LACTULOSE [Concomitant]
  14. LANTOPROST [Concomitant]
  15. LORAZEPAM [Concomitant]
  16. METHYLPREDNISOLONE 16MG TAB [Concomitant]

REACTIONS (5)
  - AGITATION [None]
  - GAZE PALSY [None]
  - GRAND MAL CONVULSION [None]
  - OXYGEN SATURATION DECREASED [None]
  - REFUSAL OF TREATMENT BY RELATIVE [None]
